FAERS Safety Report 8988022 (Version 2)
Quarter: 2013Q2

REPORT INFORMATION
  Report Type: Spontaneous
  Country: DK (occurrence: CH)
  Receive Date: 20121227
  Receipt Date: 20130422
  Transmission Date: 20140414
  Serious: Yes (Hospitalization, Other)
  Sender: FDA-Public Use
  Company Number: CH-FRI-1000041216

PATIENT
  Age: 1 Day
  Sex: 0
  Weight: 1.4 kg

DRUGS (3)
  1. ESCITALOPRAM [Suspect]
     Route: 064
     Dates: start: 20110818, end: 20120225
  2. SEROQUEL [Suspect]
  3. LABETALOL [Concomitant]

REACTIONS (5)
  - Respiratory failure [Unknown]
  - Metabolic acidosis [Unknown]
  - Hypernatraemia [Unknown]
  - Premature baby [Unknown]
  - Foetal exposure during pregnancy [Unknown]
